FAERS Safety Report 5316168-9 (Version None)
Quarter: 2007Q2

REPORT INFORMATION
  Report Type: 
  Country: None (occurrence: None)
  Receive Date: 20070503
  Receipt Date: 20070423
  Transmission Date: 20071010
  Serious: Yes (Other)
  Sender: FDA-Public Use
  Company Number: US-PFIZER INC-2007030882

PATIENT
  Sex: Female
  Weight: 55.9 kg

DRUGS (5)
  1. CHANTIX [Suspect]
     Indication: SMOKING CESSATION THERAPY
     Dates: start: 20070406, end: 20070409
  2. ANTIHYPERTENSIVES [Concomitant]
     Indication: HYPERTENSION
  3. METHADONE HCL [Concomitant]
  4. SOMA [Concomitant]
  5. ADVIL [Concomitant]

REACTIONS (4)
  - BEDRIDDEN [None]
  - NAUSEA [None]
  - SOMNOLENCE [None]
  - STOMACH DISCOMFORT [None]
